FAERS Safety Report 5907022-X (Version None)
Quarter: 2008Q4

REPORT INFORMATION
  Report Type: 
  Country: None (occurrence: None)
  Receive Date: 20081003
  Receipt Date: 20080920
  Transmission Date: 20090506
  Serious: Yes (Life-Threatening, Hospitalization, Disabling, Other)
  Sender: FDA-Public Use
  Company Number: JP-SOLVAY-00308003351

PATIENT
  Age: 28396 Day
  Sex: Male
  Weight: 44 kg

DRUGS (16)
  1. INHIBACE [Concomitant]
     Indication: HYPERTENSION
     Dosage: DAILY DOSE: 0.5 MILLIGRAM(S)
     Route: 048
     Dates: start: 19991025, end: 20080716
  2. CREON [Suspect]
     Indication: PANCREATITIS CHRONIC
     Dosage: DAILY DOSE: 12 DOSAGE FORM
     Route: 048
     Dates: start: 20080220, end: 20080716
  3. BIO-THREE [Concomitant]
     Indication: MALNUTRITION
     Dosage: DAILY DOSE: 3 GRAM(S)
     Route: 048
     Dates: start: 20010612, end: 20080716
  4. PROMAC [Concomitant]
     Indication: MALNUTRITION
     Dosage: DAILY DOSE: 150 MILLIGRAM(S)
     Route: 048
     Dates: start: 20060728, end: 20080716
  5. NIFLAN [Concomitant]
     Indication: INFECTION PROPHYLAXIS
     Dosage: DAILY DOSE: 3 DOSAGE FORM
     Route: 047
     Dates: start: 20070101, end: 20080716
  6. MENTHOLATUM AD CREAM A [Concomitant]
     Indication: PRURITUS
     Dosage: DAILY DOSE: ADEQUATE DOSE; FREQUENCY: AS NEEDED
     Route: 062
     Dates: start: 20070101, end: 20080716
  7. MYCOSPOR [Concomitant]
     Indication: ONYCHOMYCOSIS
     Dosage: DAILY DOSE: ADEQUATE DOSE, FREQUENCY: AS NEEDED
     Route: 062
     Dates: start: 20080513, end: 20080716
  8. PENFILL R [Concomitant]
     Indication: DIABETES MELLITUS
     Dosage: DAILY DOSE: 3 INTERNATIONAL UNIT(S) IN THE MORNING
     Route: 058
     Dates: start: 20080305, end: 20080305
  9. PENFILL R [Concomitant]
     Dosage: DAILY DOSE: 6 INTERNATIONAL UNIT(S)
     Route: 058
     Dates: start: 20080306, end: 20080610
  10. PENFILL R [Concomitant]
     Dosage: DAILY DOSE: 7 INTERNATIONAL UNIT(S), AS USED: 4 IU IN THE MORNING, 3 IU IN THE EVENING; TWICE A DAY
     Route: 058
     Dates: start: 20080611, end: 20080716
  11. LETRAC [Concomitant]
     Indication: CERVICOBRACHIAL SYNDROME
     Dosage: DAILY DOSE: 180 MILLIGRAM(S)
     Route: 048
     Dates: start: 20080227, end: 20080716
  12. TIROLBIT [Concomitant]
     Indication: CERVICOBRACHIAL SYNDROME
     Dosage: DAILY DOSE: 3 MILLIGRAM(S)
     Route: 048
     Dates: start: 20080227, end: 20080716
  13. NEUROTROPIN [Concomitant]
     Indication: CERVICOBRACHIAL SYNDROME
     Dosage: DAILY DOSE: 3 MILLILITRE(S); FREQUENCY: ONCE A WEEK
     Route: 030
     Dates: start: 20080227, end: 20080716
  14. NEO VITACAIN [Concomitant]
     Indication: CERVICOBRACHIAL SYNDROME
     Dosage: DAILY DOSE: 2 MILLILITRE(S) FREQUENCY: ONCE A WEEK
     Route: 030
     Dates: start: 20080227, end: 20080716
  15. INSIDE [Concomitant]
     Indication: CERVICOBRACHIAL SYNDROME
     Dosage: DAILY DOSE: ADEQUATE DOSE; FREQUENCY: AS NEEDED
     Route: 062
     Dates: start: 20080227, end: 20080716
  16. ADALAT [Concomitant]
     Indication: HYPERTENSION
     Dosage: DAILY DOSE: 5 MILLIGRAM(S)
     Route: 048
     Dates: start: 20080708, end: 20080708

REACTIONS (2)
  - BLOOD PRESSURE INCREASED [None]
  - CEREBRAL HAEMORRHAGE [None]
